FAERS Safety Report 23848503 (Version 1)
Quarter: 2024Q2

REPORT INFORMATION
  Report Type: Spontaneous
  Country: FR (occurrence: FR)
  Receive Date: 20240513
  Receipt Date: 20240513
  Transmission Date: 20240716
  Serious: Yes (Other)
  Sender: FDA-Public Use
  Company Number: None

PATIENT
  Age: 58 Year
  Sex: Male
  Weight: 51 kg

DRUGS (5)
  1. LEVETIRACETAM [Suspect]
     Active Substance: LEVETIRACETAM
     Indication: Wrong patient received product
     Dosage: 1 G, ONCE/SINGLE
     Route: 048
     Dates: start: 20240331, end: 20240331
  2. CARBAMAZEPINE [Suspect]
     Active Substance: CARBAMAZEPINE
     Indication: Wrong patient received product
     Dosage: 400 MG, ONCE/SINGLE
     Route: 048
     Dates: start: 20240331, end: 20240331
  3. CYAMEMAZINE [Suspect]
     Active Substance: CYAMEMAZINE
     Indication: Wrong patient received product
     Dosage: 25 MG, ONCE/SINGLE
     Route: 048
     Dates: start: 20240331, end: 20240331
  4. QUETIAPINE FUMARATE [Suspect]
     Active Substance: QUETIAPINE FUMARATE
     Indication: Wrong patient received product
     Dosage: 800 MG, ONCE/SINGLE
     Route: 048
     Dates: start: 20240331, end: 20240331
  5. VALPROMIDE [Suspect]
     Active Substance: VALPROMIDE
     Indication: Wrong patient received product
     Dosage: 300 MG, ONCE/SINGLE
     Route: 048
     Dates: start: 20240331, end: 20240331

REACTIONS (4)
  - Loss of consciousness [Recovered/Resolved]
  - Somnolence [Recovered/Resolved]
  - Pneumonia aspiration [Recovered/Resolved]
  - Wrong patient received product [Recovered/Resolved]

NARRATIVE: CASE EVENT DATE: 20240331
